FAERS Safety Report 6307891-8 (Version None)
Quarter: 2009Q3

REPORT INFORMATION
  Report Type: 
  Country: None (occurrence: None)
  Receive Date: 20090812
  Receipt Date: 20090812
  Transmission Date: 20100115
  Serious: Yes (Death)
  Sender: FDA-Public Use
  Company Number: None

PATIENT
  Sex: Male

DRUGS (9)
  1. REVLIMID [Suspect]
     Indication: MULTIPLE MYELOMA
     Dosage: REVLIMID 15MG QDAY X 7D ON/7D OFF ORAL
     Route: 048
     Dates: start: 20061201, end: 20070201
  2. REVLIMID [Suspect]
     Indication: MULTIPLE MYELOMA
     Dosage: REVLIMID 15MG QDAY X 7D ON/7D OFF ORAL
     Route: 048
     Dates: start: 20070301, end: 20070701
  3. REVLIMID [Suspect]
     Indication: MULTIPLE MYELOMA
     Dosage: REVLIMID 15MG QDAY X 7D ON/7D OFF ORAL
     Route: 048
     Dates: start: 20071001
  4. GABAPENTIN [Concomitant]
  5. LEVOTHYROXINE [Concomitant]
  6. ONDANSETRON [Concomitant]
  7. MORPHINE [Concomitant]
  8. DULCOLAX [Concomitant]
  9. TESSALON [Concomitant]

REACTIONS (3)
  - BACK PAIN [None]
  - DISEASE PROGRESSION [None]
  - MULTIPLE MYELOMA [None]
